FAERS Safety Report 8276845-7 (Version None)
Quarter: 2012Q2

REPORT INFORMATION
  Report Type: 
  Country: None (occurrence: None)
  Receive Date: 20120409
  Receipt Date: 20120402
  Transmission Date: 20120825
  Serious: Yes (Hospitalization)
  Sender: FDA-Public Use
  Company Number: 2012SP000153

PATIENT
  Age: 47 Year
  Sex: Male
  Weight: 70 kg

DRUGS (5)
  1. PEG-INTRON [Suspect]
     Indication: HEPATITIS C
     Dosage: 105 MCG;QW;SC
     Route: 058
     Dates: start: 20110318, end: 20120217
  2. REBETOL [Suspect]
     Indication: HEPATITIS C
     Dosage: 1000 MG;QD;PO ; 1000 MG;QD;PO
     Route: 048
     Dates: start: 20120103, end: 20120217
  3. REBETOL [Suspect]
     Indication: HEPATITIS C
     Dosage: 1000 MG;QD;PO ; 1000 MG;QD;PO
     Route: 048
     Dates: start: 20110318, end: 20111231
  4. FERRO SANOL DUODENAL (FERROUS GLYCINE SULFATE) [Suspect]
     Indication: IRON DEFICIENCY
     Dosage: 100 MG;QD;PO
     Route: 048
     Dates: start: 20101101
  5. PANTOPRAZOLE [Concomitant]

REACTIONS (6)
  - CHOLECYSTITIS [None]
  - PYREXIA [None]
  - MALLORY-WEISS SYNDROME [None]
  - BILE DUCT STONE [None]
  - UPPER GASTROINTESTINAL HAEMORRHAGE [None]
  - ABDOMINAL PAIN UPPER [None]
